FAERS Safety Report 6937133-1 (Version None)
Quarter: 2010Q3

REPORT INFORMATION
  Report Type: 
  Country: None (occurrence: None)
  Receive Date: 20100823
  Receipt Date: 20100809
  Transmission Date: 20110219
  Serious: Yes (Other)
  Sender: FDA-Public Use
  Company Number: DE-MYLANLABS-2010S1014104

PATIENT
  Age: 67 Year
  Sex: Female

DRUGS (3)
  1. LORAZEPAM [Suspect]
     Indication: SLEEP DISORDER
     Route: 048
     Dates: start: 20100729
  2. AMITRIPTYLINE HCL [Concomitant]
     Indication: PRODUCT USED FOR UNKNOWN INDICATION
  3. NORMOC [Concomitant]
     Indication: PRODUCT USED FOR UNKNOWN INDICATION

REACTIONS (4)
  - BLOOD PRESSURE INCREASED [None]
  - HEADACHE [None]
  - SLEEP DISORDER [None]
  - VERTIGO [None]
